FAERS Safety Report 9018894 (Version 1)
Quarter: 2013Q1

REPORT INFORMATION
  Report Type: Spontaneous
  Country: FR (occurrence: FR)
  Receive Date: 20130118
  Receipt Date: 20130118
  Transmission Date: 20140127
  Serious: Yes (Hospitalization)
  Sender: FDA-Public Use
  Company Number: FR-BAXTER-2013BAX001318

PATIENT
  Age: 76 Year
  Sex: Female

DRUGS (19)
  1. ENDOXAN 2000 MG, LYOPHILISAT POUR SOLUTION INJECTABLE [Suspect]
     Indication: PRODUCT USED FOR UNKNOWN INDICATION
     Route: 042
     Dates: start: 20120723
  2. ENDOXAN 2000 MG, LYOPHILISAT POUR SOLUTION INJECTABLE [Suspect]
     Route: 042
     Dates: start: 20120817
  3. ENDOXAN 2000 MG, LYOPHILISAT POUR SOLUTION INJECTABLE [Suspect]
     Route: 042
     Dates: start: 20120920, end: 20120920
  4. GABAPENTINE [Suspect]
     Indication: PRODUCT USED FOR UNKNOWN INDICATION
     Route: 048
     Dates: start: 20120724, end: 20120727
  5. GABAPENTINE [Suspect]
     Route: 048
     Dates: start: 20120728, end: 20120729
  6. GABAPENTINE [Suspect]
     Route: 048
     Dates: start: 20120730, end: 20120905
  7. GABAPENTINE [Suspect]
     Route: 048
     Dates: start: 20120905, end: 20120906
  8. GABAPENTINE [Suspect]
     Route: 048
     Dates: start: 20120907, end: 20120912
  9. GABAPENTINE [Suspect]
     Route: 048
     Dates: start: 20120913, end: 20121003
  10. GABAPENTINE [Suspect]
     Route: 048
     Dates: end: 20121004
  11. EUPANTOL [Concomitant]
     Indication: PRODUCT USED FOR UNKNOWN INDICATION
     Dosage: 1 TABLET
     Route: 048
  12. DUPHALAC [Concomitant]
     Indication: PRODUCT USED FOR UNKNOWN INDICATION
     Dosage: 2 BAGS
     Route: 048
  13. GAVISCON [Concomitant]
     Indication: PRODUCT USED FOR UNKNOWN INDICATION
     Dosage: 3 BAGS
     Route: 048
  14. KARDEGIC [Concomitant]
     Indication: PRODUCT USED FOR UNKNOWN INDICATION
     Dosage: 1 UNIT
     Route: 048
  15. SOLUPRED [Concomitant]
     Indication: PRODUCT USED FOR UNKNOWN INDICATION
     Dosage: 3 UNITS THEN DECREASED TO 1 UNIT
     Route: 048
     Dates: start: 20120613
  16. SKENAN LP [Concomitant]
     Indication: PRODUCT USED FOR UNKNOWN INDICATION
     Dosage: 1 UNIT
     Route: 048
     Dates: start: 20120829
  17. DOMPERIDONE [Concomitant]
     Indication: PRODUCT USED FOR UNKNOWN INDICATION
     Route: 048
     Dates: start: 20120830
  18. LAROXYL 40 [Concomitant]
     Indication: PRODUCT USED FOR UNKNOWN INDICATION
     Route: 048
     Dates: start: 20121004, end: 20121022
  19. LAROXYL 40 [Concomitant]
     Route: 048
     Dates: start: 20121023

REACTIONS (1)
  - Hepatitis [Recovered/Resolved]
